FAERS Safety Report 24136473 (Version 1)
Quarter: 2024Q3

REPORT INFORMATION
  Report Type: Spontaneous
  Country: GB (occurrence: GB)
  Receive Date: 20240725
  Receipt Date: 20240725
  Transmission Date: 20241016
  Serious: Yes (Other)
  Sender: RANBAXY
  Company Number: GB-MHRA-MED-202407092345355580-DSFMK

PATIENT
  Age: 41 Year
  Sex: Male
  Weight: 102 kg

DRUGS (1)
  1. CIPROFLOXACIN [Suspect]
     Active Substance: CIPROFLOXACIN
     Indication: Limb operation
     Dosage: 750 MILLIGRAM, TWICE DAILY
     Route: 065
     Dates: start: 20240528, end: 20240709

REACTIONS (6)
  - Medication error [Unknown]
  - Depression [Not Recovered/Not Resolved]
  - Mood swings [Not Recovered/Not Resolved]
  - Abdominal discomfort [Not Recovered/Not Resolved]
  - Asthenia [Not Recovered/Not Resolved]
  - Pruritus [Not Recovered/Not Resolved]
